FAERS Safety Report 5237268-8 (Version None)
Quarter: 2007Q1

REPORT INFORMATION
  Report Type: 
  Country: None (occurrence: None)
  Receive Date: 20070213
  Receipt Date: 20070209
  Transmission Date: 20070707
  Serious: Yes (Hospitalization)
  Sender: FDA-Public Use
  Company Number: US-BRISTOL-MYERS SQUIBB COMPANY-13675608

PATIENT
  Age: 86 Year
  Sex: Male

DRUGS (1)
  1. COUMADIN [Suspect]
     Indication: ATRIAL FIBRILLATION
     Dosage: 4MG/D ON SUN AND WED, 2MG/D THE REST OF THE WEEK

REACTIONS (2)
  - INTERNATIONAL NORMALISED RATIO DECREASED [None]
  - LUNG DISORDER [None]
